FAERS Safety Report 4766246-8 (Version None)
Quarter: 2005Q3

REPORT INFORMATION
  Report Type: 
  Country: None (occurrence: None)
  Receive Date: 20050912
  Receipt Date: 20050609
  Transmission Date: 20060218
  Serious: Yes (Hospitalization, Disabling, Other)
  Sender: FDA-Public Use
  Company Number: US-MERCK-0506USA01867

PATIENT
  Age: 59 Year
  Sex: Female
  Weight: 64 kg

DRUGS (5)
  1. VIOXX [Suspect]
     Indication: ARTHRITIS
     Route: 048
     Dates: start: 20030401, end: 20030701
  2. TOPROL-XL [Concomitant]
     Route: 065
     Dates: start: 19980101, end: 20050101
  3. ASPIRIN [Concomitant]
     Route: 065
     Dates: start: 19980101, end: 20050101
  4. LIPITOR [Concomitant]
     Route: 065
     Dates: start: 19980101, end: 20050101
  5. TYLENOL [Concomitant]
     Route: 065
     Dates: start: 19940101

REACTIONS (2)
  - CARDIAC DISORDER [None]
  - MYOCARDIAL INFARCTION [None]
